FAERS Safety Report 12376203 (Version 2)
Quarter: 2016Q2

REPORT INFORMATION
  Report Type: Spontaneous
  Country: GB (occurrence: GB)
  Receive Date: 20160517
  Receipt Date: 20160531
  Transmission Date: 20160815
  Serious: Yes (Other)
  Sender: FDA-Public Use
  Company Number: GB-JNJFOC-20160503854

PATIENT

DRUGS (2)
  1. THROMBIN [Suspect]
     Active Substance: THROMBIN
     Indication: TRAUMATIC LIVER INJURY
     Route: 061
  2. FIBRIN SEALANT NOS [Suspect]
     Active Substance: FIBRINOGEN HUMAN\THROMBIN HUMAN
     Indication: TRAUMATIC LIVER INJURY
     Route: 061

REACTIONS (4)
  - Biliary drainage [Unknown]
  - Haemorrhage [Unknown]
  - Perihepatic abscess [Unknown]
  - Drug effect decreased [Unknown]
